FAERS Safety Report 10376919 (Version 1)
Quarter: 2014Q3

REPORT INFORMATION
  Report Type: Spontaneous
  Country: US (occurrence: US)
  Receive Date: 20140811
  Receipt Date: 20140811
  Transmission Date: 20150326
  Serious: Yes (Other)
  Sender: FDA-Public Use
  Company Number: US-ELI_LILLY_AND_COMPANY-US201407010892

PATIENT
  Age: 32 Year
  Sex: Female
  Weight: 83.9 kg

DRUGS (2)
  1. SYMBYAX [Suspect]
     Active Substance: FLUOXETINE HYDROCHLORIDE\OLANZAPINE
     Indication: PRODUCT USED FOR UNKNOWN INDICATION
     Dosage: 1 DF, QD
  2. ALPRAZOLAM. [Concomitant]
     Active Substance: ALPRAZOLAM

REACTIONS (11)
  - Head injury [Unknown]
  - Back pain [Unknown]
  - Incorrect dose administered [Unknown]
  - Contusion [Unknown]
  - Musculoskeletal pain [Unknown]
  - Neck pain [Unknown]
  - Joint injury [Unknown]
  - Disorientation [Unknown]
  - Osteochondral fracture [Recovered/Resolved]
  - Fall [Recovered/Resolved]
  - Dizziness [Unknown]

NARRATIVE: CASE EVENT DATE: 20080130
